FAERS Safety Report 14734260 (Version 1)
Quarter: 2018Q2

REPORT INFORMATION
  Report Type: Spontaneous
  Country: US (occurrence: US)
  Receive Date: 20180409
  Receipt Date: 20180409
  Transmission Date: 20180711
  Serious: Yes (Life-Threatening, Hospitalization)
  Sender: FDA-Public Use
  Company Number: US-ALKERMES INC.-ALK-2018-002045

PATIENT
  Age: 25 Year
  Sex: Male

DRUGS (1)
  1. VIVITROL [Suspect]
     Active Substance: NALTREXONE
     Indication: DRUG DEPENDENCE
     Dosage: 380 MG, QMO
     Route: 030

REACTIONS (10)
  - Confusional state [Recovered/Resolved]
  - Mydriasis [Unknown]
  - Drug dependence [Unknown]
  - Delirium [Unknown]
  - Sinus tachycardia [Not Recovered/Not Resolved]
  - Anxiety [Unknown]
  - Agitation [Unknown]
  - Withdrawal syndrome [Unknown]
  - Mental disorder [Unknown]
  - Hyperhidrosis [Unknown]
